FAERS Safety Report 8822386 (Version 1)
Quarter: 2012Q4

REPORT INFORMATION
  Report Type: 
  Country: US (occurrence: US)
  Receive Date: 20121003
  Receipt Date: 20121003
  Transmission Date: 20130627
  Serious: Yes (Hospitalization)
  Sender: FDA-Public Use
  Company Number: US-BAYER-2012-102937

PATIENT
  Age: 0 Year
  Sex: Male
  Weight: 1.67 kg

DRUGS (11)
  1. YASMIN [Suspect]
     Route: 064
  2. PRENATAL VITAMINS [Concomitant]
     Route: 064
  3. MAGNESIUM [Concomitant]
     Route: 064
  4. BETAMETHASONE [Concomitant]
     Route: 064
  5. TERBUTALINE [Concomitant]
     Route: 064
  6. ADENOCARD [Concomitant]
     Route: 064
  7. PROCARDIA XL [Concomitant]
     Route: 064
  8. LOPRESSOR [Concomitant]
     Route: 064
  9. MEPERGAN FORTIS [Concomitant]
     Route: 064
  10. CELESTONE [Concomitant]
     Route: 064
  11. ANTIBIOTICS [Concomitant]
     Route: 064

REACTIONS (1)
  - Premature baby [None]
